FAERS Safety Report 8198302-9 (Version None)
Quarter: 2012Q1

REPORT INFORMATION
  Report Type: 
  Country: None (occurrence: None)
  Receive Date: 20120309
  Receipt Date: 20120307
  Transmission Date: 20120608
  Serious: Yes (Life-Threatening, Hospitalization)
  Sender: FDA-Public Use
  Company Number: US-MERCK-1201USA02875

PATIENT
  Age: 86 Year
  Sex: Female

DRUGS (10)
  1. JANUVIA [Suspect]
     Indication: DIABETES MELLITUS
     Route: 048
     Dates: start: 20100118
  2. CRESTOR [Concomitant]
     Route: 065
  3. ASPIRIN [Concomitant]
     Route: 065
  4. VITAMIN D (UNSPECIFIED) [Concomitant]
     Route: 065
  5. THYROID [Concomitant]
     Route: 065
  6. PEPCID [Concomitant]
     Route: 048
  7. BYSTOLIC [Concomitant]
     Route: 065
  8. PLAVIX [Concomitant]
     Route: 065
  9. ACTOS [Concomitant]
     Route: 065
  10. CARDURA [Concomitant]
     Route: 065

REACTIONS (3)
  - ADVERSE EVENT [None]
  - CARCINOID TUMOUR OF THE PANCREAS [None]
  - NEOPLASM [None]
